FAERS Safety Report 6089299-6 (Version None)
Quarter: 2009Q1

REPORT INFORMATION
  Report Type: 
  Country: None (occurrence: None)
  Receive Date: 20090224
  Receipt Date: 20090218
  Transmission Date: 20090719
  Serious: Yes (Other)
  Sender: FDA-Public Use
  Company Number: US-ELI_LILLY_AND_COMPANY-US200812002413

PATIENT
  Sex: Female
  Weight: 75.283 kg

DRUGS (24)
  1. BYETTA [Suspect]
     Dosage: UNK, UNKNOWN
     Route: 065
  2. BYETTA [Suspect]
     Dosage: 5 UG, DAILY (1/D)
     Dates: start: 20070326, end: 20080830
  3. FLEXERIL [Concomitant]
     Dosage: UNK, UNKNOWN
  4. TOPROL-XL [Concomitant]
     Dosage: 100 MG, DAILY (1/D)
  5. NAPROXEN [Concomitant]
     Dosage: 500 MG, AS NEEDED
  6. LISINOPRIL HYDROCHLORTHIAZID [Concomitant]
     Dosage: UNK, DAILY (1/D)
  7. PLAVIX [Concomitant]
     Dosage: 75 MG, DAILY (1/D)
  8. SEROQUEL [Concomitant]
     Dosage: 25 MG, DAILY (1/D)
  9. STARLIX [Concomitant]
     Dosage: UNK, 3/D
  10. LOPID [Concomitant]
     Dosage: 600 MG, 2/D
  11. AVANDAMET [Concomitant]
     Dosage: UNK, 2/D
  12. VITAMIN D [Concomitant]
     Dosage: UNK, WEEKLY (1/W)
  13. XANAX [Concomitant]
     Dosage: 1 MG, AS NEEDED
  14. METFORMIN [Concomitant]
     Dosage: UNK, UNKNOWN
  15. PIOGLITAZONE [Concomitant]
     Dosage: UNK, UNKNOWN
  16. PEXEVA [Concomitant]
     Dosage: 20 MG, UNKNOWN
  17. OXYCODONE W/PARACETAMOL [Concomitant]
     Dosage: UNK, UNKNOWN
  18. WELLBUTRIN XL [Concomitant]
     Dosage: 150 MG, UNKNOWN
  19. TRAMADOL HCL [Concomitant]
     Dosage: UNK, UNKNOWN
  20. LONOX [Concomitant]
     Dosage: UNK, UNKNOWN
  21. FLECTOR [Concomitant]
     Dosage: UNK, UNKNOWN
  22. AMLODIPINE MALEATE/ BENAZEPRIL HYDROCHLORIDE [Concomitant]
     Dosage: UNK, UNKNOWN
  23. RANITIDINE [Concomitant]
     Dosage: 300 MG, UNKNOWN
  24. OTHER CHOLESTEROL AND TRIGLYCERIDE REDUCERS [Concomitant]
     Dosage: UNK, UNKNOWN

REACTIONS (1)
  - PANCREATITIS [None]
